FAERS Safety Report 6360825-2 (Version None)
Quarter: 2009Q3

REPORT INFORMATION
  Report Type: 
  Country: None (occurrence: None)
  Receive Date: 20090918
  Receipt Date: 20090907
  Transmission Date: 20100115
  Serious: Yes (Other)
  Sender: FDA-Public Use
  Company Number: GB-ROCHE-655161

PATIENT
  Age: 4 Year
  Sex: Male

DRUGS (9)
  1. TAMIFLU [Suspect]
     Indication: DRUG USE FOR UNKNOWN INDICATION
     Dosage: NOT AVAILABLE-STANDARD RECOMMENDED FOR AGE.
     Route: 065
     Dates: start: 20090713, end: 20090717
  2. CHEMOTHERAPY [Concomitant]
     Indication: ACUTE LEUKAEMIA
     Dosage: UKALL2003 REG WEEK 75 ON 30 JUNE, IN MAINTENANCE CHEMO.
  3. MEROPENEM TRIHYDRATE [Concomitant]
  4. MERCAPTOPURINE [Concomitant]
  5. METHOTREXATE [Concomitant]
  6. DEXAMETHASONE [Concomitant]
  7. OMEPRAZOLE SODIUM [Concomitant]
  8. COTRIM [Concomitant]
  9. VINCRISTINE [Concomitant]

REACTIONS (1)
  - THROMBOCYTOPENIA [None]
